FAERS Safety Report 6151116-3 (Version None)
Quarter: 2009Q2

REPORT INFORMATION
  Report Type: 
  Country: None (occurrence: None)
  Receive Date: 20090410
  Receipt Date: 20090401
  Transmission Date: 20091009
  Serious: Yes (Disabling, Other)
  Sender: FDA-Public Use
  Company Number: BR-PFIZER INC-2008034676

PATIENT

DRUGS (2)
  1. DEPO-PROVERA [Suspect]
     Indication: OFF LABEL USE
     Dosage: 150 MG, EVERY 3 MONTHS
     Route: 030
     Dates: start: 20080325, end: 20080325
  2. DEPO-PROVERA [Suspect]
     Indication: MENSTRUAL DISCOMFORT

REACTIONS (13)
  - ASTHENIA [None]
  - BACK PAIN [None]
  - IRRITABILITY [None]
  - MENOMETRORRHAGIA [None]
  - MIGRAINE [None]
  - NAUSEA [None]
  - NERVOUSNESS [None]
  - PAIN IN EXTREMITY [None]
  - PELVIC PAIN [None]
  - POLLAKIURIA [None]
  - STARVATION [None]
  - SYNCOPE [None]
  - THIRST [None]
